FAERS Safety Report 7992802-X (Version None)
Quarter: 2011Q4

REPORT INFORMATION
  Report Type: 
  Country: None (occurrence: None)
  Receive Date: 20111219
  Receipt Date: 20110309
  Transmission Date: 20120403
  Serious: No
  Sender: FDA-Public Use
  Company Number: US-ASTRAZENECA-2011SE14422

PATIENT
  Age: 65 Year
  Sex: Female
  Weight: 67.6 kg

DRUGS (7)
  1. CRESTOR [Suspect]
     Indication: BLOOD CHOLESTEROL INCREASED
     Route: 048
  2. FENOFIBRIC ACID [Suspect]
     Indication: BLOOD TRIGLYCERIDES INCREASED
     Dosage: 1 IN MORNING
     Route: 048
     Dates: start: 20101201, end: 20110309
  3. MULTIVATIMIN [Concomitant]
  4. UNKNOWN VITAMIN [Concomitant]
     Indication: ALOPECIA
  5. METOPROLOL XR [Concomitant]
     Indication: HYPERTENSION
  6. BIOTIN [Concomitant]
  7. FISH OIL [Concomitant]

REACTIONS (4)
  - DYSPEPSIA [None]
  - NAUSEA [None]
  - HEADACHE [None]
  - CHEST PAIN [None]
